FAERS Safety Report 23447316 (Version 2)
Quarter: 2024Q1

REPORT INFORMATION
  Report Type: Spontaneous
  Country: JP (occurrence: JP)
  Receive Date: 20240126
  Receipt Date: 20240308
  Transmission Date: 20240409
  Serious: Yes (Other)
  Sender: FDA-Public Use
  Company Number: JP-ASTELLAS-2024JP000507

PATIENT
  Age: 7 Decade
  Sex: Female

DRUGS (1)
  1. PADCEV [Suspect]
     Active Substance: ENFORTUMAB VEDOTIN-EJFV
     Indication: Metastatic carcinoma of the bladder
     Dosage: 60 MG, ONCE WEEKLY FOR 3 WEEKS, INTERRUPTED AT THE 4TH WEEK
     Route: 042
     Dates: start: 20231214, end: 20231228

REACTIONS (3)
  - Delirium [Unknown]
  - Mania [Unknown]
  - Decreased appetite [Unknown]

NARRATIVE: CASE EVENT DATE: 20231225
